FAERS Safety Report 4269452-4 (Version None)
Quarter: 2004Q1

REPORT INFORMATION
  Report Type: 
  Country: None (occurrence: None)
  Receive Date: 20040112
  Receipt Date: 20040108
  Transmission Date: 20041129
  Serious: Yes (Death, Life-Threatening)
  Sender: FDA-Public Use
  Company Number: ITWYE478422DEC03

PATIENT
  Age: 39 Year
  Sex: Female

DRUGS (5)
  1. GEMTUZUMAB OZOGAMICIN (GEMTUZUMAB OZOGAMICIN, INJECTION) [Suspect]
     Indication: ACUTE PROMYELOCYTIC LEUKAEMIA
  2. IDARUBICIN HCL [Concomitant]
  3. TIOGUANINE (TIOGUANINE) [Concomitant]
  4. TRETINOIN [Concomitant]
  5. CYTARABINE [Concomitant]

REACTIONS (3)
  - DYSPNOEA [None]
  - INTESTINAL PERFORATION [None]
  - SEPTIC SHOCK [None]
